FAERS Safety Report 5213238-0 (Version None)
Quarter: 2007Q1

REPORT INFORMATION
  Report Type: 
  Country: None (occurrence: None)
  Receive Date: 20070119
  Receipt Date: 20070109
  Transmission Date: 20070707
  Serious: Yes (Congenital Anomaly)
  Sender: FDA-Public Use
  Company Number: JP-NOVOPROD-259566

PATIENT
  Sex: Female
  Weight: 2 kg

DRUGS (6)
  1. NOVORAPID CHU [Suspect]
     Indication: DIABETES MELLITUS INSULIN-DEPENDENT
     Dosage: 48 U, QD
     Route: 064
     Dates: start: 20060105
  2. FLUTIDE [Concomitant]
     Dosage: 200 UG, QD
     Route: 064
     Dates: start: 20060614, end: 20061005
  3. THEOLONG [Concomitant]
     Dosage: 400 MG, QD
     Route: 064
     Dates: start: 20060614, end: 20061005
  4. MUCODYNE [Concomitant]
     Dosage: 1.5 MG, QD
     Route: 064
     Dates: start: 20060614, end: 20061005
  5. SULTANOL                           /00139501/ [Concomitant]
     Route: 064
     Dates: start: 20060614, end: 20061005
  6. SEREVENT [Concomitant]
     Route: 064
     Dates: start: 20060614, end: 20061005

REACTIONS (3)
  - DRUG EXPOSURE DURING PREGNANCY [None]
  - EAR MALFORMATION [None]
  - FACIAL PALSY [None]
